FAERS Safety Report 10190112 (Version 1)
Quarter: 2014Q2

REPORT INFORMATION
  Report Type: Spontaneous
  Country: AU (occurrence: AU)
  Receive Date: 20140522
  Receipt Date: 20140522
  Transmission Date: 20141212
  Serious: Yes (Other)
  Sender: FDA-Public Use
  Company Number: AU-ELI_LILLY_AND_COMPANY-AU201405004607

PATIENT
  Sex: Male

DRUGS (4)
  1. ANDEPRA [Suspect]
     Indication: STRESS
     Dosage: 60 MG, QD
     Route: 048
     Dates: start: 2012
  2. ANDEPRA [Suspect]
     Dosage: 60 MG, EVERY 2 DAYS
     Route: 048
  3. ATACAND [Concomitant]
     Indication: PRODUCT USED FOR UNKNOWN INDICATION
     Dosage: UNK, UNKNOWN
     Route: 065
  4. DIABEX [Concomitant]
     Indication: PRODUCT USED FOR UNKNOWN INDICATION
     Dosage: UNK, UNKNOWN
     Route: 065

REACTIONS (12)
  - Heart rate irregular [Unknown]
  - Eructation [Unknown]
  - Decreased appetite [Unknown]
  - Insomnia [Unknown]
  - Fatigue [Unknown]
  - Sexual dysfunction [Unknown]
  - Dizziness [Unknown]
  - Vision blurred [Unknown]
  - Confusional state [Unknown]
  - Tinnitus [Unknown]
  - Myalgia [Unknown]
  - Paraesthesia [Unknown]
